FAERS Safety Report 16023221 (Version 1)
Quarter: 2019Q1

REPORT INFORMATION
  Report Type: Spontaneous
  Country: US (occurrence: US)
  Receive Date: 20190301
  Receipt Date: 20190301
  Transmission Date: 20190418
  Serious: No
  Sender: FDA-Public Use
  Company Number: US-GLAXOSMITHKLINE-US2019033059

PATIENT
  Age: 51 Year
  Sex: Female

DRUGS (1)
  1. NUCALA [Suspect]
     Active Substance: MEPOLIZUMAB
     Indication: PRODUCT USED FOR UNKNOWN INDICATION
     Dosage: UNK
     Route: 058
     Dates: start: 201803

REACTIONS (9)
  - Herpes zoster [Unknown]
  - Drug ineffective [Unknown]
  - Fungal infection [Unknown]
  - Cough [Unknown]
  - Exfoliative rash [Unknown]
  - Rash generalised [Unknown]
  - Rash pruritic [Unknown]
  - Contusion [Unknown]
  - Wheezing [Unknown]

NARRATIVE: CASE EVENT DATE: 201805
